FAERS Safety Report 23738390 (Version 1)
Quarter: 2024Q2

REPORT INFORMATION
  Report Type: Spontaneous
  Country: US (occurrence: US)
  Receive Date: 20240412
  Receipt Date: 20240412
  Transmission Date: 20240716
  Serious: No
  Sender: FDA-Public Use
  Company Number: US-MIRATI-MT2024PM06381

PATIENT

DRUGS (3)
  1. KRAZATI [Suspect]
     Active Substance: ADAGRASIB
     Indication: Lung adenocarcinoma stage IV
     Dosage: 600 MG, QD
     Route: 048
  2. KRAZATI [Suspect]
     Active Substance: ADAGRASIB
     Dosage: 400 MG, BID
     Route: 048
  3. KRAZATI [Suspect]
     Active Substance: ADAGRASIB
     Dosage: 600 MG, BID
     Route: 048

REACTIONS (3)
  - Skin hyperpigmentation [Recovering/Resolving]
  - Nausea [Unknown]
  - Diarrhoea [Unknown]
